FAERS Safety Report 7783234-8 (Version None)
Quarter: 2011Q3

REPORT INFORMATION
  Report Type: 
  Country: None (occurrence: None)
  Receive Date: 20110928
  Receipt Date: 20110922
  Transmission Date: 20111222
  Serious: Yes (Other)
  Sender: FDA-Public Use
  Company Number: US-SANOFI-AVENTIS-2011SA054882

PATIENT
  Sex: Female
  Weight: 65.4 kg

DRUGS (8)
  1. LOVENOX [Suspect]
     Indication: PREGNANCY
     Route: 065
     Dates: start: 20030101
  2. PRENATAL VITAMINS [Concomitant]
     Route: 048
  3. LOVENOX [Suspect]
     Dates: start: 20110826
  4. PROMETRIUM [Concomitant]
     Route: 048
     Dates: start: 20110827
  5. LOVENOX [Suspect]
     Route: 065
     Dates: start: 20090101
  6. LOVENOX [Suspect]
     Route: 065
     Dates: start: 20110101
  7. ASPIRIN [Concomitant]
     Route: 048
     Dates: start: 20110827
  8. SYNTHROID [Concomitant]
     Route: 048
     Dates: start: 20110818

REACTIONS (2)
  - MATERNAL EXPOSURE DURING PREGNANCY [None]
  - ABORTION SPONTANEOUS [None]
